FAERS Safety Report 6741607-6 (Version None)
Quarter: 2010Q2

REPORT INFORMATION
  Report Type: 
  Country: None (occurrence: None)
  Receive Date: 20100526
  Receipt Date: 20100518
  Transmission Date: 20101027
  Serious: Yes (Death, Hospitalization)
  Sender: FDA-Public Use
  Company Number: US-AMGEN-QUU411065

PATIENT
  Sex: Female

DRUGS (4)
  1. NPLATE [Suspect]
     Indication: IDIOPATHIC THROMBOCYTOPENIC PURPURA
     Dates: start: 20100422, end: 20100422
  2. CORTICOSTEROIDS [Concomitant]
     Dates: start: 20091201, end: 20100424
  3. IMMU-G [Concomitant]
     Dates: start: 20091201, end: 20100424
  4. CYCLOPHOSPHAMIDE [Concomitant]
     Dates: start: 20100416, end: 20100422

REACTIONS (6)
  - BACK PAIN [None]
  - FLANK PAIN [None]
  - GASTROINTESTINAL HAEMORRHAGE [None]
  - PNEUMONIA [None]
  - THROMBOCYTOPENIA [None]
  - VOMITING [None]
